FAERS Safety Report 9848188 (Version 3)
Quarter: 2014Q2

REPORT INFORMATION
  Report Type: Other
  Country: US (occurrence: US)
  Receive Date: 20140128
  Receipt Date: 20140604
  Transmission Date: 20141212
  Serious: Yes (Other)
  Sender: FDA-Public Use
  Company Number: US-SHIRE-ALL1-2014-00433

PATIENT
  Age: 38 Year
  Sex: Female
  Weight: 54.5 kg

DRUGS (3)
  1. VPRIV [Suspect]
     Indication: GAUCHER^S DISEASE
     Dosage: 3200 IU (8 VIALS), 1X/2WKS
     Route: 041
     Dates: start: 20111110, end: 201401
  2. VPRIV [Suspect]
     Dosage: 3200 IU (8 VIALS), 1X/2WKS
     Route: 041
     Dates: start: 20140215
  3. ALLEGRA [Concomitant]
     Indication: PREMEDICATION
     Dosage: 180 MG, OTHER (EVENING PRIOR TO NEXT DAY^S INFUSION)
     Route: 065
     Dates: start: 20140215

REACTIONS (6)
  - Feeling hot [Recovered/Resolved]
  - Migraine [Recovered/Resolved]
  - Infusion site urticaria [Recovered/Resolved]
  - Infusion related reaction [Recovered/Resolved]
  - Blood pressure increased [Recovered/Resolved]
  - Heart rate increased [Recovered/Resolved]
